FAERS Safety Report 17040386 (Version 1)
Quarter: 2019Q4

REPORT INFORMATION
  Report Type: Spontaneous
  Country: US (occurrence: US)
  Receive Date: 20191117
  Receipt Date: 20191117
  Transmission Date: 20200122
  Serious: No
  Sender: FDA-Public Use
  Company Number: US-TORRENT-00009057

PATIENT
  Age: 94 Year
  Sex: Female
  Weight: 55 kg

DRUGS (1)
  1. LOSARTAN. [Suspect]
     Active Substance: LOSARTAN
     Indication: BLOOD PRESSURE ABNORMAL
     Dates: start: 2016

REACTIONS (3)
  - Fatigue [Not Recovered/Not Resolved]
  - Alopecia [Not Recovered/Not Resolved]
  - Muscle spasms [Not Recovered/Not Resolved]

NARRATIVE: CASE EVENT DATE: 2018
